FAERS Safety Report 18016310 (Version 7)
Quarter: 2021Q3

REPORT INFORMATION
  Report Type: Report from Study
  Country: US (occurrence: US)
  Receive Date: 20200714
  Receipt Date: 20210721
  Transmission Date: 20211014
  Serious: Yes (Hospitalization)
  Sender: FDA-Public Use
  Company Number: NVSC2020US191799

PATIENT
  Age: 65 Year
  Sex: Female

DRUGS (5)
  1. ESCITALOPRAM [Suspect]
     Active Substance: ESCITALOPRAM OXALATE
     Indication: DEPRESSION
  2. ENTRESTO [Suspect]
     Active Substance: SACUBITRIL\VALSARTAN
     Indication: PRODUCT USED FOR UNKNOWN INDICATION
     Dosage: UNK
     Route: 048
     Dates: start: 201905
  3. NITROGLYCERIN. [Suspect]
     Active Substance: NITROGLYCERIN
     Indication: PRODUCT USED FOR UNKNOWN INDICATION
     Dosage: UNK
     Route: 065
  4. ESCITALOPRAM [Suspect]
     Active Substance: ESCITALOPRAM OXALATE
     Indication: ANXIETY
     Dosage: UNK
     Route: 065
     Dates: start: 202005
  5. METFORMIN [Suspect]
     Active Substance: METFORMIN HYDROCHLORIDE
     Indication: PRODUCT USED FOR UNKNOWN INDICATION
     Dosage: UNK
     Route: 065

REACTIONS (19)
  - Sinus disorder [Unknown]
  - Headache [Unknown]
  - Dyspnoea [Unknown]
  - Cerebrovascular accident [Unknown]
  - Rhinorrhoea [Unknown]
  - Appetite disorder [Unknown]
  - Cough [Unknown]
  - Peripheral swelling [Unknown]
  - Lacrimation increased [Unknown]
  - Throat clearing [Unknown]
  - Memory impairment [Unknown]
  - Somnolence [Unknown]
  - Anxiety [Unknown]
  - Fatigue [Unknown]
  - Weight decreased [Unknown]
  - Depression [Unknown]
  - Diarrhoea [Unknown]
  - Vision blurred [Unknown]
  - Rash [Unknown]

NARRATIVE: CASE EVENT DATE: 20210602
